FAERS Safety Report 14102028 (Version 1)
Quarter: 2017Q4

REPORT INFORMATION
  Report Type: Not Available
  Country: GB (occurrence: GB)
  Receive Date: 20171018
  Receipt Date: 20171018
  Transmission Date: 20180321
  Serious: Yes (Other)
  Sender: FDA-Public Use
  Company Number: GB-IDTAUSTRALIA-2017-UK-000053

PATIENT
  Age: 62 Year
  Sex: Male

DRUGS (4)
  1. TEMOZOLOMIDE CAPSULES (NON-SPECIFIC) [Suspect]
     Active Substance: TEMOZOLOMIDE
     Route: 048
  2. DEXAMETHASONE (NON-SPECIFIC) [Concomitant]
     Active Substance: DEXAMETHASONE
     Dosage: 1 MG DAILY
  3. ONDANSETRON [Concomitant]
     Active Substance: ONDANSETRON
  4. LANSOPRAZOLE. [Concomitant]
     Active Substance: LANSOPRAZOLE

REACTIONS (1)
  - Drug reaction with eosinophilia and systemic symptoms [Unknown]
